FAERS Safety Report 6957913-6 (Version None)
Quarter: 2010Q3

REPORT INFORMATION
  Report Type: 
  Country: None (occurrence: None)
  Receive Date: 20100831
  Receipt Date: 20100827
  Transmission Date: 20110219
  Serious: No
  Sender: FDA-Public Use
  Company Number: US-B.I. PHARMACEUTICALS,INC./RIDGEFIELD-2010-BP-09788BP

PATIENT
  Age: 64 Year
  Sex: Male

DRUGS (2)
  1. COMBIVENT [Suspect]
     Indication: DYSPNOEA
     Dosage: 8 PUF
     Route: 055
     Dates: start: 20020101
  2. ALBUTEROL [Concomitant]

REACTIONS (1)
  - DYSPNOEA [None]
